FAERS Safety Report 7158369-3 (Version None)
Quarter: 2010Q4

REPORT INFORMATION
  Report Type: 
  Country: None (occurrence: None)
  Receive Date: 20101214
  Receipt Date: 20100512
  Transmission Date: 20110411
  Serious: Yes (Other)
  Sender: FDA-Public Use
  Company Number: US-PFIZER INC-2010060408

PATIENT
  Sex: Female

DRUGS (2)
  1. ARTHROTEC [Suspect]
     Indication: OSTEOARTHRITIS
     Dosage: 1 DF, 1X/DAY
     Route: 048
     Dates: start: 20100401
  2. CYCLOBENZAPRINE [Concomitant]
     Dosage: UNK

REACTIONS (2)
  - URINE ABNORMALITY [None]
  - VAGINAL HAEMORRHAGE [None]
